FAERS Safety Report 7345431-5 (Version None)
Quarter: 2011Q1

REPORT INFORMATION
  Report Type: 
  Country: None (occurrence: None)
  Receive Date: 20110310
  Receipt Date: 20110309
  Transmission Date: 20110831
  Serious: Yes (Hospitalization, Other)
  Sender: FDA-Public Use
  Company Number: MX-ABBOTT-11P-107-0709889-00

PATIENT
  Sex: Female

DRUGS (5)
  1. TRUVADA [Suspect]
     Indication: HIV INFECTION
     Route: 048
     Dates: start: 20110124, end: 20110217
  2. BACTRIM [Concomitant]
     Indication: PROPHYLAXIS
     Dates: start: 20110124, end: 20110217
  3. KALETRA [Suspect]
     Indication: HIV INFECTION
     Route: 048
     Dates: start: 20110124, end: 20110217
  4. FERROUS SULFATE TAB [Concomitant]
     Indication: ANAEMIA
     Dates: start: 20110217
  5. CAPTOPRIL [Concomitant]
     Indication: HYPERTENSION
     Dates: end: 20100217

REACTIONS (2)
  - RENAL FAILURE ACUTE [None]
  - PANCREATITIS [None]
